FAERS Safety Report 5625317-4 (Version None)
Quarter: 2008Q1

REPORT INFORMATION
  Report Type: 
  Country: None (occurrence: None)
  Receive Date: 20080211
  Receipt Date: 20080204
  Transmission Date: 20080703
  Serious: Yes (Death)
  Sender: FDA-Public Use
  Company Number: 2008-00719

PATIENT
  Age: 50 Year
  Sex: Male

DRUGS (4)
  1. ZOLPIDEM TARTRATE [Suspect]
  2. ETHANOL (ETHANOL) [Suspect]
  3. CLAVAMOX (AMOXICILLIN TRIHYDRATE, CLAVULANATE POTASSIUM) [Suspect]
  4. CORTICOSTEROID NOS (CORTICOSTEROID NOS) [Suspect]

REACTIONS (1)
  - CARDIO-RESPIRATORY ARREST [None]
